FAERS Safety Report 7344739-7 (Version None)
Quarter: 2011Q1

REPORT INFORMATION
  Report Type: 
  Country: None (occurrence: None)
  Receive Date: 20110228
  Receipt Date: 20110214
  Transmission Date: 20110831
  Serious: Yes (Hospitalization)
  Sender: FDA-Public Use
  Company Number: PHHY2010GR69209

PATIENT
  Age: 70 Year
  Sex: Male

DRUGS (3)
  1. LUCENTIS [Concomitant]
  2. DRUGS NOS FOR LUNG CANCER [Concomitant]
  3. VISUDYNE [Suspect]
     Indication: MACULAR DEGENERATION
     Dates: start: 20101011, end: 20101011

REACTIONS (3)
  - DRUG INTOLERANCE [None]
  - VOMITING [None]
  - ANAPHYLACTIC SHOCK [None]
